FAERS Safety Report 16949979 (Version 8)
Quarter: 2022Q1

REPORT INFORMATION
  Report Type: Report from Study
  Country: US (occurrence: US)
  Receive Date: 20191023
  Receipt Date: 20220121
  Transmission Date: 20220424
  Serious: Yes (Death, Hospitalization, Other)
  Sender: FDA-Public Use
  Company Number: US-SHIRE-US201933976

PATIENT
  Age: 55 Year
  Sex: Female

DRUGS (4)
  1. PARATHYROID HORMONE [Suspect]
     Active Substance: PARATHYROID HORMONE
     Indication: Hypoparathyroidism
     Dosage: 50 MICROGRAM, BID
     Route: 058
     Dates: end: 20211225
  2. PARATHYROID HORMONE [Suspect]
     Active Substance: PARATHYROID HORMONE
     Indication: Hypoparathyroidism
     Dosage: 50 MICROGRAM, BID
     Route: 058
     Dates: end: 20211225
  3. PARATHYROID HORMONE [Suspect]
     Active Substance: PARATHYROID HORMONE
     Indication: Hypoparathyroidism
     Dosage: 50 MICROGRAM, BID
     Route: 058
     Dates: end: 20211225
  4. MAGNESIUM [Concomitant]
     Active Substance: MAGNESIUM
     Indication: Product used for unknown indication
     Route: 065

REACTIONS (10)
  - Death [Fatal]
  - Hypoventilation [Recovered/Resolved]
  - Oxygen saturation decreased [Recovering/Resolving]
  - Blood calcium abnormal [Unknown]
  - Blood calcium decreased [Recovering/Resolving]
  - Dyspnoea [Unknown]
  - Recalled product [Unknown]
  - Asthenia [Unknown]
  - Inappropriate schedule of product administration [Unknown]
  - Product administration error [Unknown]

NARRATIVE: CASE EVENT DATE: 20200709
